FAERS Safety Report 7980528-8 (Version None)
Quarter: 2011Q4

REPORT INFORMATION
  Report Type: 
  Country: None (occurrence: None)
  Receive Date: 20111214
  Receipt Date: 20111205
  Transmission Date: 20120403
  Serious: Yes (Other)
  Sender: FDA-Public Use
  Company Number: JP-GLAXOSMITHKLINE-B0767706A

PATIENT
  Age: 16 Year
  Sex: Male

DRUGS (7)
  1. ARRANON [Suspect]
     Indication: T-CELL TYPE ACUTE LEUKAEMIA
     Route: 042
  2. CYCLOPHOSPHAMIDE [Suspect]
     Indication: T-CELL TYPE ACUTE LEUKAEMIA
     Route: 065
  3. FENTANYL [Concomitant]
     Indication: CANCER PAIN
     Route: 042
  4. FLUDARABINE PHOSPHATE [Concomitant]
     Indication: CORD BLOOD TRANSPLANT THERAPY
     Route: 065
  5. CYTARABINE [Concomitant]
     Indication: CORD BLOOD TRANSPLANT THERAPY
     Route: 042
  6. BORTEZOMIB [Suspect]
     Indication: T-CELL TYPE ACUTE LEUKAEMIA
     Route: 042
  7. MELPHALAN HYDROCHLORIDE [Concomitant]
     Indication: CORD BLOOD TRANSPLANT THERAPY
     Route: 065

REACTIONS (12)
  - AREFLEXIA [None]
  - MUSCULAR WEAKNESS [None]
  - HYPOAESTHESIA [None]
  - NUCLEAR MAGNETIC RESONANCE IMAGING ABNORMAL [None]
  - DYSPNOEA [None]
  - DECREASED VIBRATORY SENSE [None]
  - MONOPLEGIA [None]
  - NERVOUS SYSTEM DISORDER [None]
  - NERVE CONDUCTION STUDIES ABNORMAL [None]
  - RESPIRATORY ARREST [None]
  - FALL [None]
  - MUSCLE ATROPHY [None]
